FAERS Safety Report 16147787 (Version 3)
Quarter: 2019Q2

REPORT INFORMATION
  Report Type: Spontaneous
  Country: US (occurrence: US)
  Receive Date: 20190402
  Receipt Date: 20190416
  Transmission Date: 20190711
  Serious: Yes (Other)
  Sender: FDA-Public Use
  Company Number: US-PFIZER INC-2019132368

PATIENT
  Age: 66 Year
  Sex: Female

DRUGS (4)
  1. ADVIL LIQUI-GELS [Suspect]
     Active Substance: IBUPROFEN
     Indication: NEURALGIA
  2. ADVIL LIQUI-GELS [Suspect]
     Active Substance: IBUPROFEN
     Indication: PAIN
     Dosage: UNK
     Dates: start: 20190321
  3. ADVIL LIQUI-GELS [Suspect]
     Active Substance: IBUPROFEN
     Indication: PAIN IN EXTREMITY
  4. ADVIL LIQUI-GELS [Suspect]
     Active Substance: IBUPROFEN
     Indication: INFLAMMATION

REACTIONS (11)
  - Foreign body in respiratory tract [Unknown]
  - Pharyngeal swelling [Unknown]
  - Product size issue [Unknown]
  - Oropharyngeal pain [Unknown]
  - Throat irritation [Unknown]
  - Choking [Unknown]
  - Product distribution issue [Unknown]
  - Dyspnoea [Unknown]
  - Pain [Unknown]
  - Weight decreased [Unknown]
  - Drug ineffective [Unknown]

NARRATIVE: CASE EVENT DATE: 20190321
